FAERS Safety Report 5142913-1 (Version None)
Quarter: 2006Q4

REPORT INFORMATION
  Report Type: 
  Country: None (occurrence: None)
  Receive Date: 20061030
  Receipt Date: 20061020
  Transmission Date: 20070319
  Serious: Yes (Life-Threatening, Other)
  Sender: FDA-Public Use
  Company Number: MC200600697

PATIENT
  Age: 74 Year
  Sex: Female
  Weight: 82 kg

DRUGS (10)
  1. ANGIOMAX [Suspect]
     Dosage: SEE IMAGE
     Dates: start: 20061002, end: 20061002
  2. ANGIOMAX [Suspect]
     Dosage: SEE IMAGE
     Dates: start: 20061002, end: 20061002
  3. PANTOPRAZOLE SODIUM [Concomitant]
  4. CEFUROXIME [Concomitant]
  5. FUROSEMIDE [Concomitant]
  6. CLOPIDOGREL [Concomitant]
  7. ASPIRIN [Concomitant]
  8. BISOCARD                                     (BISOPROLOL) [Concomitant]
  9. ATORVASTATIN CALCIUM [Concomitant]
  10. CILAZAPRIL                (CILAZAPRIL) [Concomitant]

REACTIONS (6)
  - ANURIA [None]
  - CARDIOGENIC SHOCK [None]
  - DRUG INEFFECTIVE [None]
  - HYPOTONIA [None]
  - SURGICAL PROCEDURE REPEATED [None]
  - THROMBOSIS IN DEVICE [None]
